FAERS Safety Report 8533342-9 (Version None)
Quarter: 2012Q3

REPORT INFORMATION
  Report Type: 
  Country: None (occurrence: None)
  Receive Date: 20120724
  Receipt Date: 20120716
  Transmission Date: 20120928
  Serious: Yes (Other)
  Sender: FDA-Public Use
  Company Number: TR-JNJFOC-20120604836

PATIENT
  Sex: Female
  Weight: 45 kg

DRUGS (3)
  1. REMICADE [Suspect]
     Route: 042
     Dates: end: 20050101
  2. REMICADE [Suspect]
     Route: 042
     Dates: start: 20070101
  3. REMICADE [Suspect]
     Indication: ANKYLOSING SPONDYLITIS
     Route: 042
     Dates: start: 20020101

REACTIONS (4)
  - PAIN [None]
  - THYROID OPERATION [None]
  - HERPES ZOSTER [None]
  - WEIGHT DECREASED [None]
